FAERS Safety Report 15533474 (Version 8)
Quarter: 2022Q1

REPORT INFORMATION
  Report Type: Spontaneous
  Country: RO (occurrence: RO)
  Receive Date: 20181019
  Receipt Date: 20220317
  Transmission Date: 20220423
  Serious: Yes (Hospitalization, Other)
  Sender: FDA-Public Use
  Company Number: RO-PFIZER INC-2018420971

PATIENT
  Age: 80 Year
  Sex: Male

DRUGS (15)
  1. RAMIPRIL [Suspect]
     Active Substance: RAMIPRIL
     Indication: Hypertension
     Dosage: 5 MG, DAILY
  2. RAMIPRIL [Suspect]
     Active Substance: RAMIPRIL
     Indication: Acute coronary syndrome
  3. BISOPROLOL FUMARATE [Suspect]
     Active Substance: BISOPROLOL FUMARATE
     Indication: Hypertension
     Dosage: 5 MG, DAILY
  4. BISOPROLOL FUMARATE [Suspect]
     Active Substance: BISOPROLOL FUMARATE
     Indication: Acute coronary syndrome
  5. RASAGILINE MESYLATE [Suspect]
     Active Substance: RASAGILINE MESYLATE
     Indication: Parkinson^s disease
     Dosage: 1 MG, DAILY
     Dates: start: 2017
  6. CANDESARTAN [Suspect]
     Active Substance: CANDESARTAN
     Indication: Hypertension
     Dosage: 16 MG, DAILY
     Dates: start: 2012
  7. CARBIDOPA\LEVODOPA [Suspect]
     Active Substance: CARBIDOPA\LEVODOPA
     Indication: Parkinson^s disease
     Dosage: 1 DF, DAILY
     Dates: start: 2017
  8. CARBIDOPA\LEVODOPA [Suspect]
     Active Substance: CARBIDOPA\LEVODOPA
     Dosage: 275 MG, QD
     Dates: start: 2017
  9. LERCANIDIPINE [Suspect]
     Active Substance: LERCANIDIPINE
     Indication: Hypertension
     Dosage: 10 MG, DAILY
     Dates: start: 2012
  10. LERCANIDIPINE [Suspect]
     Active Substance: LERCANIDIPINE
     Dosage: 10 MG, UNK
     Dates: start: 2012
  11. ROSUVASTATIN [Concomitant]
     Active Substance: ROSUVASTATIN
     Indication: Acute coronary syndrome
     Dosage: 20 MG, DAILY
     Dates: start: 2016
  12. ROSUVASTATIN [Concomitant]
     Active Substance: ROSUVASTATIN
     Dosage: 10 MG, DAILY
  13. CLOPIDOGREL [Concomitant]
     Active Substance: CLOPIDOGREL BISULFATE
     Indication: Acute coronary syndrome
     Dosage: 75 MG, DAILY
     Dates: start: 2016
  14. RIVAROXABAN [Concomitant]
     Active Substance: RIVAROXABAN
     Indication: Thrombosis
     Dosage: 20 MG, DAILY
     Dates: start: 2016
  15. OMEPRAZOLE [Concomitant]
     Active Substance: OMEPRAZOLE
     Dosage: 40 MG, DAILY

REACTIONS (2)
  - Orthostatic hypotension [Recovering/Resolving]
  - Supine hypertension [Recovering/Resolving]
